FAERS Safety Report 11231628 (Version 1)
Quarter: 2015Q2

REPORT INFORMATION
  Report Type: Spontaneous
  Country: US (occurrence: None)
  Receive Date: 20150630
  Receipt Date: 20150630
  Transmission Date: 20150821
  Serious: No
  Sender: FDA-Public Use
  Company Number: None

PATIENT
  Age: 58 Year
  Sex: Female

DRUGS (1)
  1. RASUVO [Suspect]
     Active Substance: METHOTREXATE SODIUM
     Route: 042
     Dates: start: 20140621

REACTIONS (4)
  - Dizziness [None]
  - Anxiety [None]
  - Nausea [None]
  - Eye swelling [None]

NARRATIVE: CASE EVENT DATE: 20150627
